FAERS Safety Report 19964826 (Version 2)
Quarter: 2023Q4

REPORT INFORMATION
  Report Type: Spontaneous
  Country: US (occurrence: US)
  Receive Date: 20211018
  Receipt Date: 20231101
  Transmission Date: 20240110
  Serious: Yes (Other)
  Sender: FDA-Public Use
  Company Number: US-COOPERSURGICAL, INC.-US-2021CPS003089

PATIENT
  Age: 39 Year
  Sex: Female

DRUGS (1)
  1. PARAGARD T 380A [Suspect]
     Active Substance: COPPER
     Indication: Contraception
     Dosage: UNK
     Route: 015
     Dates: start: 20080612, end: 20210121

REACTIONS (18)
  - Uterine leiomyoma [Unknown]
  - Uterine scar [Unknown]
  - Device breakage [Recovered/Resolved]
  - Complication of device removal [Recovered/Resolved]
  - Foreign body in reproductive tract [Recovered/Resolved]
  - Embedded device [Recovered/Resolved]
  - Device use issue [Unknown]
  - Abdominal pain [Unknown]
  - Economic problem [Unknown]
  - Emotional distress [Unknown]
  - Depression [Unknown]
  - Vaginal infection [Unknown]
  - Back pain [Unknown]
  - Anxiety [Unknown]
  - Menopause [Unknown]
  - Axillary mass [Unknown]
  - Complication of device insertion [Recovered/Resolved]
  - Smear cervix abnormal [Unknown]

NARRATIVE: CASE EVENT DATE: 20080612
